FAERS Safety Report 6599289-2 (Version None)
Quarter: 2010Q1

REPORT INFORMATION
  Report Type: 
  Country: None (occurrence: None)
  Receive Date: 20100217
  Receipt Date: 20100127
  Transmission Date: 20100710
  Serious: Yes (Hospitalization)
  Sender: FDA-Public Use
  Company Number: 2009AC000369

PATIENT
  Age: 57 Year
  Sex: Female

DRUGS (13)
  1. DIGOXIN [Suspect]
     Dosage: 250 MCG; PO
     Route: 048
     Dates: start: 20080229
  2. DIGOXIN [Suspect]
     Dosage: 0.25 MG; QD; PO
     Route: 048
     Dates: start: 20060301
  3. CLONIDINE [Concomitant]
  4. METOPROLOL TARTRATE [Concomitant]
  5. PRAVASTATIN [Concomitant]
  6. HUMLIN INSULIN [Concomitant]
  7. AMILORIDE HYDROCHLORIDE [Concomitant]
  8. NORVASC [Concomitant]
  9. ASPIRIN [Concomitant]
  10. LISINOPRIL [Concomitant]
  11. POTASSIUM [Concomitant]
  12. PRACACHOL [Concomitant]
  13. MAXZIDE [Concomitant]

REACTIONS (16)
  - ABDOMINAL PAIN [None]
  - ABDOMINAL PAIN UPPER [None]
  - BRADYCARDIA [None]
  - CARDIAC FAILURE CONGESTIVE [None]
  - ECONOMIC PROBLEM [None]
  - GALLBLADDER DISORDER [None]
  - HYPERCHOLESTEROLAEMIA [None]
  - HYPOKALAEMIA [None]
  - HYPOMAGNESAEMIA [None]
  - INJURY [None]
  - MYOCARDIAL INFARCTION [None]
  - NAUSEA [None]
  - RENAL FAILURE [None]
  - THERAPEUTIC AGENT TOXICITY [None]
  - UNEVALUABLE EVENT [None]
  - VOMITING [None]
